FAERS Safety Report 14624700 (Version 1)
Quarter: 2018Q1

REPORT INFORMATION
  Report Type: Spontaneous
  Country: US (occurrence: US)
  Receive Date: 20180312
  Receipt Date: 20180312
  Transmission Date: 20180509
  Serious: Yes (Death, Other)
  Sender: FDA-Public Use
  Company Number: US-QILU PHARMACEUTICAL CO.LTD.-QLU-000028-2018

PATIENT
  Age: 9 Year
  Sex: Female

DRUGS (3)
  1. CEFTRIAXONE. [Suspect]
     Active Substance: CEFTRIAXONE
     Indication: PYREXIA
     Dosage: 3 DOSES
     Route: 042
  2. CEFTRIAXONE. [Suspect]
     Active Substance: CEFTRIAXONE
     Dosage: 2 G, UNK
     Route: 065
  3. CEFDINIR. [Concomitant]
     Active Substance: CEFDINIR
     Indication: URINARY TRACT INFECTION
     Dosage: UNK
     Route: 048

REACTIONS (18)
  - Multiple organ dysfunction syndrome [Unknown]
  - Mental status changes [Unknown]
  - Tachycardia [Unknown]
  - Hypotension [Unknown]
  - Nasal flaring [Unknown]
  - Intracranial pressure increased [Unknown]
  - Brain oedema [Unknown]
  - Pallor [Unknown]
  - Disseminated intravascular coagulation [Unknown]
  - Bradycardia [Unknown]
  - Oxygen saturation decreased [Unknown]
  - Unresponsive to stimuli [Unknown]
  - Cardiac arrest [Unknown]
  - Hernia [Unknown]
  - Condition aggravated [Unknown]
  - Haemolysis [Fatal]
  - Brain death [Fatal]
  - Grunting [Unknown]
